FAERS Safety Report 7210418-X (Version None)
Quarter: 2010Q4

REPORT INFORMATION
  Report Type: 
  Country: None (occurrence: None)
  Receive Date: 20101221
  Receipt Date: 20101215
  Transmission Date: 20110411
  Serious: Yes (Life-Threatening, Hospitalization)
  Sender: FDA-Public Use
  Company Number: 2010026801

PATIENT
  Sex: Female

DRUGS (1)
  1. ZEMAIRA [Suspect]
     Dosage: (INTRAVENOUS)
     Route: 042

REACTIONS (5)
  - APPARENT LIFE THREATENING EVENT [None]
  - ASTHENIA [None]
  - HEMIPLEGIA [None]
  - HYPOAESTHESIA [None]
  - WRONG TECHNIQUE IN DRUG USAGE PROCESS [None]
